FAERS Safety Report 11783306 (Version 2)
Quarter: 2015Q4

REPORT INFORMATION
  Report Type: Report from Study
  Country: BR (occurrence: BR)
  Receive Date: 20151127
  Receipt Date: 20151224
  Transmission Date: 20160305
  Serious: Yes (Other)
  Sender: FDA-Public Use
  Company Number: PHHY2015BR154338

PATIENT
  Age: 56 Year
  Sex: Female
  Weight: 103 kg

DRUGS (3)
  1. EXJADE [Suspect]
     Active Substance: DEFERASIROX
     Indication: MYELODYSPLASTIC SYNDROME
     Dosage: 9 DF (45 MG/KG/DAY), QD
     Route: 048
     Dates: start: 2010
  2. FUROSEMIDE. [Concomitant]
     Active Substance: FUROSEMIDE
     Indication: HYPERTENSION
     Dosage: 25 MG, QD
     Route: 048
  3. LOSARTAN. [Concomitant]
     Active Substance: LOSARTAN
     Indication: HYPERTENSION
     Dosage: 50 MG, IN THE MORNING
     Route: 048

REACTIONS (10)
  - Myalgia [Not Recovered/Not Resolved]
  - Diabetes mellitus [Unknown]
  - Weight decreased [Recovering/Resolving]
  - Serum ferritin increased [Recovering/Resolving]
  - Calculus urinary [Recovering/Resolving]
  - Muscle spasms [Not Recovered/Not Resolved]
  - Neutropenia [Unknown]
  - Gastrointestinal pain [Not Recovered/Not Resolved]
  - Urinary tract infection [Recovered/Resolved]
  - Decreased appetite [Recovering/Resolving]

NARRATIVE: CASE EVENT DATE: 2010
